FAERS Safety Report 5343512-9 (Version None)
Quarter: 2007Q2

REPORT INFORMATION
  Report Type: 
  Country: None (occurrence: None)
  Receive Date: 20070604
  Receipt Date: 20070522
  Transmission Date: 20071010
  Serious: Yes (Hospitalization)
  Sender: FDA-Public Use
  Company Number: US-JNJFOC-20070505716

PATIENT
  Age: 62 Year
  Sex: Female

DRUGS (3)
  1. REMICADE [Suspect]
     Route: 042
  2. REMICADE [Suspect]
     Indication: DRUG USE FOR UNKNOWN INDICATION
     Route: 042
  3. ANTIBIOTIC [Suspect]
     Indication: DRUG USE FOR UNKNOWN INDICATION

REACTIONS (6)
  - CHEST PAIN [None]
  - CORONARY ARTERY OCCLUSION [None]
  - DRUG HYPERSENSITIVITY [None]
  - HYPERTENSION [None]
  - INFUSION RELATED REACTION [None]
  - URINARY TRACT INFECTION [None]
